FAERS Safety Report 21115872 (Version 4)
Quarter: 2023Q1

REPORT INFORMATION
  Report Type: Spontaneous
  Country: US (occurrence: US)
  Receive Date: 20220721
  Receipt Date: 20230327
  Transmission Date: 20230418
  Serious: No
  Sender: FDA-Public Use
  Company Number: US-SA-SAC20220719000253

PATIENT
  Age: 54 Year
  Sex: Female

DRUGS (1)
  1. AUBAGIO [Suspect]
     Active Substance: TERIFLUNOMIDE
     Indication: Multiple sclerosis
     Dosage: 14 MG, QD
     Route: 048
     Dates: start: 20190810

REACTIONS (15)
  - Fatigue [Unknown]
  - Band sensation [Not Recovered/Not Resolved]
  - Skin sensitisation [Unknown]
  - Balance disorder [Unknown]
  - Fall [Unknown]
  - Vision blurred [Unknown]
  - Incontinence [Unknown]
  - Pruritus [Unknown]
  - Muscle spasticity [Unknown]
  - Fatigue [Unknown]
  - Fall [Unknown]
  - Balance disorder [Unknown]
  - Memory impairment [Unknown]
  - Abdominal discomfort [Unknown]
  - COVID-19 [Unknown]

NARRATIVE: CASE EVENT DATE: 20220715
